FAERS Safety Report 10374484 (Version 2)
Quarter: 2015Q1

REPORT INFORMATION
  Report Type: Report from Study
  Country: US (occurrence: US)
  Receive Date: 20140811
  Receipt Date: 20150113
  Transmission Date: 20150720
  Serious: Yes (Hospitalization)
  Sender: FDA-Public Use
  Company Number: US-ROCHE-1445733

PATIENT
  Age: 81 Year
  Sex: Female
  Weight: 80.45 kg

DRUGS (1)
  1. BEVACIZUMAB [Suspect]
     Active Substance: BEVACIZUMAB
     Indication: OVARIAN EPITHELIAL CANCER
     Dosage: DATE OF LAST DOSE PRIOR TO SAE:  15/APR/2014
     Route: 042
     Dates: start: 20130305

REACTIONS (4)
  - Hyperkalaemia [Recovered/Resolved]
  - Fall [Unknown]
  - Hypoglycaemia [Recovered/Resolved]
  - Blood creatinine increased [Recovering/Resolving]

NARRATIVE: CASE EVENT DATE: 20140512
